FAERS Safety Report 5625925-0 (Version None)
Quarter: 2008Q1

REPORT INFORMATION
  Report Type: 
  Country: None (occurrence: None)
  Receive Date: 20080211
  Receipt Date: 20080201
  Transmission Date: 20080703
  Serious: Yes (Death, Congenital Anomaly)
  Sender: FDA-Public Use
  Company Number: 8029691

PATIENT

DRUGS (1)
  1. XYZALL	/01530201/ [Suspect]
     Indication: URTICARIA
     Dosage: 1 DF /D TRP
     Route: 064

REACTIONS (3)
  - ABORTION INDUCED [None]
  - DRUG EXPOSURE DURING PREGNANCY [None]
  - FALLOT'S TETRALOGY [None]
